FAERS Safety Report 16336371 (Version 1)
Quarter: 2019Q2

REPORT INFORMATION
  Report Type: Report from Study
  Country: None (occurrence: US)
  Receive Date: 20190521
  Receipt Date: 20190521
  Transmission Date: 20190711
  Serious: Yes (Hospitalization, Other)
  Sender: FDA-Public Use
  Company Number: US-ABBVIE-19S-163-2787099-00

PATIENT
  Age: 65 Year
  Sex: Male

DRUGS (3)
  1. CREON [Suspect]
     Active Substance: PANCRELIPASE AMYLASE\PANCRELIPASE LIPASE\PANCRELIPASE PROTEASE
     Indication: PRODUCT USED FOR UNKNOWN INDICATION
     Route: 048
  2. LASIX [Concomitant]
     Active Substance: FUROSEMIDE
     Indication: PRODUCT USED FOR UNKNOWN INDICATION
  3. GEMACITABINE [Concomitant]
     Indication: ADJUVANT THERAPY

REACTIONS (19)
  - Jaundice [Unknown]
  - Pancreatic failure [Unknown]
  - Haematoma [Unknown]
  - Coronary artery disease [Unknown]
  - Cholangitis [Unknown]
  - Encephalopathy [Unknown]
  - Nocturia [Unknown]
  - Anaemia [Unknown]
  - Delirium [Unknown]
  - Nausea [Unknown]
  - Vomiting [Unknown]
  - Abdominal pain upper [Unknown]
  - Peripheral swelling [Unknown]
  - Chronic kidney disease [Unknown]
  - Jaundice cholestatic [Unknown]
  - Bile duct cancer [Unknown]
  - Peritoneal haemorrhage [Unknown]
  - Alcoholism [Unknown]
  - Jaundice [Not Recovered/Not Resolved]

NARRATIVE: CASE EVENT DATE: 20160722
